FAERS Safety Report 7397107-6 (Version None)
Quarter: 2011Q2

REPORT INFORMATION
  Report Type: 
  Country: None (occurrence: None)
  Receive Date: 20110406
  Receipt Date: 20110330
  Transmission Date: 20111010
  Serious: Yes (Death)
  Sender: FDA-Public Use
  Company Number: A0919751A

PATIENT
  Age: 68 Year
  Sex: Male

DRUGS (1)
  1. PROMACTA [Suspect]
     Indication: MYELODYSPLASTIC SYNDROME
     Route: 048
     Dates: start: 20100917, end: 20101231

REACTIONS (1)
  - RESPIRATORY FAILURE [None]
